FAERS Safety Report 9713436 (Version 1)
Quarter: 2013Q4

REPORT INFORMATION
  Report Type: Spontaneous
  Country: US (occurrence: US)
  Receive Date: 20131126
  Receipt Date: 20131126
  Transmission Date: 20140711
  Serious: Yes (Other)
  Sender: FDA-Public Use
  Company Number: US-ELI_LILLY_AND_COMPANY-US201311006439

PATIENT
  Age: 8 Year
  Sex: Male
  Weight: 42.18 kg

DRUGS (2)
  1. HUMALOG LISPRO [Suspect]
     Indication: PRODUCT USED FOR UNKNOWN INDICATION
     Dosage: UNK
     Route: 058
  2. NOVOLOG [Concomitant]

REACTIONS (6)
  - Diabetic ketoacidosis [Unknown]
  - Blood ketone body increased [Unknown]
  - Gastroenteritis viral [Unknown]
  - Thirst [Unknown]
  - Pyrexia [Unknown]
  - Blood glucose increased [Unknown]
